FAERS Safety Report 23298472 (Version 1)
Quarter: 2023Q4

REPORT INFORMATION
  Report Type: Report from Study
  Country: US (occurrence: US)
  Receive Date: 20231214
  Receipt Date: 20231214
  Transmission Date: 20240109
  Serious: Yes (Hospitalization)
  Sender: FDA-Public Use
  Company Number: US-ABBVIE-5533325

PATIENT
  Age: 57 Year
  Sex: Female

DRUGS (1)
  1. RINVOQ [Suspect]
     Active Substance: UPADACITINIB
     Indication: Product used for unknown indication
     Dosage: LAST ADMIN DATE:2023
     Route: 048
     Dates: start: 20220515

REACTIONS (3)
  - Knee operation [Unknown]
  - Sputum discoloured [Unknown]
  - Infection [Unknown]

NARRATIVE: CASE EVENT DATE: 20221101
